FAERS Safety Report 24157549 (Version 1)
Quarter: 2024Q3

REPORT INFORMATION
  Report Type: Report from Study
  Country: US (occurrence: None)
  Receive Date: 20240731
  Receipt Date: 20240731
  Transmission Date: 20241017
  Serious: Yes (Other)
  Sender: ASTRAZENECA
  Company Number: 2022A228591

PATIENT
  Sex: Female

DRUGS (4)
  1. LYNPARZA [Suspect]
     Active Substance: OLAPARIB
     Indication: Breast cancer female
     Dosage: 1 TABLET (150MG) BY MOUTH IN THE MORNING AND 2 TABLETS (300 MG) IN THE EVENING
     Route: 048
     Dates: start: 202104
  2. LYNPARZA [Suspect]
     Active Substance: OLAPARIB
     Indication: Neoplasm malignant
     Dosage: 1 TABLET (150MG) BY MOUTH IN THE MORNING AND 2 TABLETS (300 MG) IN THE EVENING
     Route: 048
     Dates: start: 202104
  3. LYNPARZA [Suspect]
     Active Substance: OLAPARIB
     Indication: Breast cancer female
     Dosage: 1 TABLET BY MOUTH IN THE MORNING AND 2 TABLETS IN THE EVENING
     Route: 048
     Dates: start: 20201224
  4. LYNPARZA [Suspect]
     Active Substance: OLAPARIB
     Indication: Neoplasm malignant
     Dosage: 1 TABLET BY MOUTH IN THE MORNING AND 2 TABLETS IN THE EVENING
     Route: 048
     Dates: start: 20201224

REACTIONS (2)
  - Intestinal obstruction [Unknown]
  - Acute febrile neutrophilic dermatosis [Unknown]
